FAERS Safety Report 5026328-2 (Version None)
Quarter: 2006Q2

REPORT INFORMATION
  Report Type: 
  Country: None (occurrence: None)
  Receive Date: 20060426
  Receipt Date: 20060131
  Transmission Date: 20061013
  Serious: Yes (Other)
  Sender: FDA-Public Use
  Company Number: 2006015915

PATIENT
  Age: 77 Year
  Sex: Male
  Weight: 102.0593 kg

DRUGS (8)
  1. LYRICA [Suspect]
     Indication: NEUROPATHY
     Dosage: 25 MG (25 MG,1 IN 1 D)
     Dates: start: 20051001, end: 20060101
  2. ALL OTHER NON-THERAPEUTIC PRODUCTS (ALL OTHER NON-THERAPEUTIC PRODUCTS [Suspect]
     Indication: ILL-DEFINED DISORDER
  3. DRUGS, UNSPECIFIED (DRUGS, UNSPECIFIED) [Concomitant]
  4. VERAPAMIL [Concomitant]
  5. CELEBREX [Concomitant]
  6. WARFARIN (WARFARIN) [Concomitant]
  7. VYTORIN [Concomitant]
  8. LANTUS [Concomitant]

REACTIONS (2)
  - DRUG INEFFECTIVE [None]
  - INSOMNIA [None]
